FAERS Safety Report 5521459-2 (Version None)
Quarter: 2007Q4

REPORT INFORMATION
  Report Type: 
  Country: None (occurrence: None)
  Receive Date: 20071119
  Receipt Date: 20071112
  Transmission Date: 20080405
  Serious: Yes (Death, Hospitalization, Other)
  Sender: FDA-Public Use
  Company Number: US-PFIZER INC-2006016268

PATIENT
  Sex: Male

DRUGS (3)
  1. BEXTRA [Suspect]
     Indication: ARTHRITIS
     Dates: start: 20031201, end: 20040407
  2. CELEBREX [Suspect]
     Indication: ARTHRITIS
     Dates: start: 20000101, end: 20040407
  3. VIOXX [Suspect]
     Route: 048
     Dates: start: 20000101, end: 20040407

REACTIONS (1)
  - MYOCARDIAL INFARCTION [None]
